FAERS Safety Report 14306838 (Version 2)
Quarter: 2018Q1

REPORT INFORMATION
  Report Type: Spontaneous
  Country: CN (occurrence: CN)
  Receive Date: 20171220
  Receipt Date: 20180116
  Transmission Date: 20180509
  Serious: Yes (Hospitalization)
  Sender: FDA-Public Use
  Company Number: CN-ASTRAZENECA-2017SF28800

PATIENT
  Age: 56 Year
  Sex: Female

DRUGS (2)
  1. SYMBICORT [Suspect]
     Active Substance: BUDESONIDE\FORMOTEROL FUMARATE DIHYDRATE
     Indication: ASTHMA
     Dosage: 160 MICROGRAMS TWO TIMES A DAY
     Route: 055
     Dates: start: 20171113, end: 20171115
  2. AMINOPHYLLINE. [Concomitant]
     Active Substance: AMINOPHYLLINE
     Dates: end: 20171115

REACTIONS (4)
  - Peripheral swelling [Recovered/Resolved]
  - Hypertension [Unknown]
  - Drug hypersensitivity [Unknown]
  - Swelling face [Recovered/Resolved]
